FAERS Safety Report 18502671 (Version 3)
Quarter: 2020Q4

REPORT INFORMATION
  Report Type: Spontaneous
  Country: US (occurrence: US)
  Receive Date: 20201113
  Receipt Date: 20201224
  Transmission Date: 20210114
  Serious: Yes (Other)
  Sender: FDA-Public Use
  Company Number: US-BAYER-2020-243199

PATIENT
  Age: 18 Year
  Sex: Female
  Weight: 115.65 kg

DRUGS (3)
  1. KYLEENA [Suspect]
     Active Substance: LEVONORGESTREL
     Indication: CONTRACEPTION
     Dosage: 17.5 ?G PER DAY,  CONTINUOUSLY
     Route: 015
     Dates: start: 20200729
  2. KYLEENA [Suspect]
     Active Substance: LEVONORGESTREL
     Indication: MENORRHAGIA
  3. ORAL CONTRACEPTIVE NOS [Concomitant]
     Active Substance: UNSPECIFIED INGREDIENT
     Dosage: UNK
     Route: 048

REACTIONS (7)
  - Product monitoring error [None]
  - Nausea [None]
  - Vomiting [None]
  - Pregnancy with contraceptive device [None]
  - Drug ineffective [None]
  - Breast tenderness [None]
  - Haemorrhage in pregnancy [None]

NARRATIVE: CASE EVENT DATE: 202009
